FAERS Safety Report 12289205 (Version 1)
Quarter: 2016Q2

REPORT INFORMATION
  Report Type: Spontaneous
  Country: US (occurrence: None)
  Receive Date: 20160420
  Receipt Date: 20160420
  Transmission Date: 20160815
  Serious: Yes (Disabling)
  Sender: FDA-Public Use
  Company Number: None

PATIENT
  Age: 76 Year
  Sex: Female
  Weight: 55.34 kg

DRUGS (12)
  1. VITAMIN K [Concomitant]
     Active Substance: PHYTONADIONE
  2. ADDERALL XR [Suspect]
     Active Substance: AMPHETAMINE ASPARTATE\AMPHETAMINE SULFATE\DEXTROAMPHETAMINE SACCHARATE\DEXTROAMPHETAMINE SULFATE
     Indication: CHRONIC FATIGUE SYNDROME
     Route: 048
     Dates: start: 20160413, end: 20160419
  3. VITAMIN C [Suspect]
     Active Substance: ASCORBIC ACID
  4. METAMUCILL [Concomitant]
  5. GINGER. [Concomitant]
     Active Substance: GINGER
  6. MULTI-VIAMIN [Concomitant]
  7. LOCOID CREME [Concomitant]
  8. STOOL SOFTENER [Concomitant]
     Active Substance: DOCUSATE CALCIUM
  9. PREMARIN [Concomitant]
     Active Substance: ESTROGENS, CONJUGATED
  10. ASPIRIN. [Concomitant]
     Active Substance: ASPIRIN
  11. MAGNESIUM CITRATE. [Concomitant]
     Active Substance: MAGNESIUM CITRATE
  12. VITAMIN D [Concomitant]
     Active Substance: CHOLECALCIFEROL

REACTIONS (5)
  - Tenderness [None]
  - Peripheral swelling [None]
  - Activities of daily living impaired [None]
  - Chillblains [None]
  - Pain in extremity [None]

NARRATIVE: CASE EVENT DATE: 20160413
